FAERS Safety Report 6327708-5 (Version None)
Quarter: 2009Q3

REPORT INFORMATION
  Report Type: 
  Country: None (occurrence: None)
  Receive Date: 20090825
  Receipt Date: 20090817
  Transmission Date: 20100115
  Serious: Yes (Hospitalization)
  Sender: FDA-Public Use
  Company Number: KR-ABBOTT-09P-090-0591396-00

PATIENT
  Age: 66 Year
  Sex: Female

DRUGS (10)
  1. HUMIRA [Suspect]
     Indication: RHEUMATOID ARTHRITIS
     Dates: start: 20080605
  2. FOLIC ACID [Concomitant]
     Indication: VITAMIN SUPPLEMENTATION
     Route: 048
     Dates: start: 19980508
  3. PREDNISOLONE [Concomitant]
     Indication: RHEUMATOID ARTHRITIS
     Route: 048
     Dates: start: 19980508
  4. METHOTREXATE [Concomitant]
     Indication: RHEUMATOID ARTHRITIS
     Dosage: 10 MG, ONCE IN ONE WEEK
     Route: 048
     Dates: start: 19980508
  5. MAXMARVIL [Concomitant]
     Indication: OSTEOPOROSIS
     Route: 048
     Dates: start: 20080615
  6. ITOPRIDE HYDROCHLORIDE [Concomitant]
     Indication: GASTRITIS
     Dosage: 100 MG DAILY
     Route: 048
     Dates: start: 20080907
  7. CLINIDIPINO [Concomitant]
     Indication: HYPERTENSION
     Route: 048
     Dates: start: 20070920
  8. ZALTOPROFEN [Concomitant]
     Indication: ARTHRITIS
     Dosage: 240 MG DAILY
     Route: 048
     Dates: start: 20060608
  9. PANTOPRAZOLE SODIUM [Concomitant]
     Indication: GASTROINTESTINAL DISORDER
     Route: 048
     Dates: start: 20080314
  10. MICROEMULSION CYCLOSPORINE [Concomitant]
     Indication: ARTHRITIS
     Dosage: 100 MG DAILY
     Route: 048
     Dates: start: 20070927, end: 20080402

REACTIONS (2)
  - CEREBRAL HAEMORRHAGE [None]
  - OEDEMA [None]
